FAERS Safety Report 7521988-6 (Version None)
Quarter: 2011Q2

REPORT INFORMATION
  Report Type: 
  Country: None (occurrence: None)
  Receive Date: 20110603
  Receipt Date: 20110522
  Transmission Date: 20111010
  Serious: Yes (Other)
  Sender: FDA-Public Use
  Company Number: US-BAYER-2011-045376

PATIENT
  Age: 48 Year
  Sex: Female
  Weight: 82 kg

DRUGS (1)
  1. BAYER AM EXTRA STRENGTH [Suspect]
     Indication: HEADACHE
     Dosage: 1 DF, ONCE
     Route: 048
     Dates: start: 20110522

REACTIONS (5)
  - HYPERSENSITIVITY [None]
  - URTICARIA [None]
  - LIP SWELLING [None]
  - ERYTHEMA [None]
  - SWELLING FACE [None]
